FAERS Safety Report 5795641-3 (Version None)
Quarter: 2008Q2

REPORT INFORMATION
  Report Type: 
  Country: None (occurrence: None)
  Receive Date: 20080630
  Receipt Date: 20080624
  Transmission Date: 20081010
  Serious: Yes (Other)
  Sender: FDA-Public Use
  Company Number: US-MERCK-0804USA01120

PATIENT
  Age: 16 Year
  Sex: Female

DRUGS (1)
  1. SINGULAIR [Suspect]
     Indication: BRONCHIAL HYPERREACTIVITY
     Route: 048
     Dates: end: 20080101

REACTIONS (4)
  - AGGRESSION [None]
  - DEPRESSION [None]
  - INTENTIONAL SELF-INJURY [None]
  - SOCIAL AVOIDANT BEHAVIOUR [None]
